FAERS Safety Report 16035619 (Version 3)
Quarter: 2019Q1

REPORT INFORMATION
  Report Type: Spontaneous
  Country: IE (occurrence: IE)
  Receive Date: 20190305
  Receipt Date: 20190313
  Transmission Date: 20190418
  Serious: Yes (Other)
  Sender: FDA-Public Use
  Company Number: IE-PFIZER INC-2019095574

PATIENT
  Age: 28 Year
  Sex: Male

DRUGS (1)
  1. XANAX [Suspect]
     Active Substance: ALPRAZOLAM
     Indication: ANXIETY
     Dosage: UNK

REACTIONS (4)
  - Drug abuse [Unknown]
  - Memory impairment [Unknown]
  - Homicide [Unknown]
  - Overdose [Unknown]

NARRATIVE: CASE EVENT DATE: 20170224
